FAERS Safety Report 4709400-3 (Version None)
Quarter: 2005Q3

REPORT INFORMATION
  Report Type: 
  Country: None (occurrence: None)
  Receive Date: 20050708
  Receipt Date: 20050630
  Transmission Date: 20060218
  Serious: Yes (Other)
  Sender: FDA-Public Use
  Company Number: 2005PK01138

PATIENT
  Age: 52 Year
  Sex: Female
  Weight: 63 kg

DRUGS (10)
  1. NAROPIN [Suspect]
     Dates: start: 20050228, end: 20050303
  2. FRAGMIN [Suspect]
     Route: 058
     Dates: start: 20050228, end: 20050315
  3. OLFEN [Suspect]
     Indication: JOINT DISLOCATION
     Route: 048
     Dates: start: 20050228, end: 20050303
  4. ACETALGIN [Suspect]
     Route: 048
     Dates: start: 20050228, end: 20050303
  5. STILNOX [Suspect]
     Route: 048
     Dates: start: 20050228, end: 20050303
  6. ELTROXIN [Concomitant]
     Route: 048
     Dates: start: 20000101
  7. BUPIVACAINE HCL [Concomitant]
     Dates: start: 20050227
  8. MEPIVACAIN B. BRAUN [Concomitant]
     Dates: start: 20050227, end: 20050227
  9. ULTIVA [Concomitant]
     Dates: start: 20050227, end: 20050227
  10. DISOPRIVAN [Concomitant]
     Dates: start: 20050227, end: 20050227

REACTIONS (5)
  - CHOLESTASIS [None]
  - HEPATOCELLULAR DAMAGE [None]
  - IMPAIRED WORK ABILITY [None]
  - JAUNDICE [None]
  - SLEEP DISORDER [None]
